FAERS Safety Report 20244221 (Version 1)
Quarter: 2021Q4

REPORT INFORMATION
  Report Type: Spontaneous
  Country: IT (occurrence: IT)
  Receive Date: 20211229
  Receipt Date: 20211229
  Transmission Date: 20220304
  Serious: Yes (Hospitalization, Other)
  Sender: FDA-Public Use
  Company Number: None

PATIENT

DRUGS (2)
  1. THIOGUANINE ANHYDROUS [Suspect]
     Active Substance: THIOGUANINE ANHYDROUS
     Indication: Acute lymphocytic leukaemia
     Dosage: 60.6 MG, CYCLICAL
     Route: 042
     Dates: start: 20211006, end: 20211018
  2. METHOTREXATE SODIUM [Suspect]
     Active Substance: METHOTREXATE SODIUM
     Indication: Acute lymphocytic leukaemia
     Dosage: 12 MG, CYCLICAL
     Route: 037
     Dates: start: 20211009, end: 20211018

REACTIONS (3)
  - Pyrexia [Recovering/Resolving]
  - Neutropenia [Recovering/Resolving]
  - Erythropenia [Recovering/Resolving]

NARRATIVE: CASE EVENT DATE: 20211026
